FAERS Safety Report 24776491 (Version 1)
Quarter: 2024Q4

REPORT INFORMATION
  Report Type: Spontaneous
  Country: US (occurrence: US)
  Receive Date: 20241226
  Receipt Date: 20241226
  Transmission Date: 20250114
  Serious: Yes (Hospitalization)
  Sender: SANOFI AVENTIS
  Company Number: US-SA-2024SA379353

PATIENT
  Age: 76 Year
  Sex: Female
  Weight: 70.91 kg

DRUGS (23)
  1. FLOMAX [Suspect]
     Active Substance: TAMSULOSIN HYDROCHLORIDE
     Indication: Bladder obstruction
     Dosage: 0.4 MG, QD (EVERY MORNING)
     Route: 048
     Dates: start: 20241205, end: 20241207
  2. TREPROSTINIL [Suspect]
     Active Substance: TREPROSTINIL
     Indication: Pulmonary arterial hypertension
     Dosage: 32 UG, QID
     Route: 055
  3. TYVASO DPI [Suspect]
     Active Substance: TREPROSTINIL
     Indication: Pulmonary arterial hypertension
     Dosage: UNK
     Route: 055
  4. CARDURA [Suspect]
     Active Substance: DOXAZOSIN MESYLATE
     Indication: Urinary tract infection
     Dosage: UNK
  5. OPSUMIT [Concomitant]
     Active Substance: MACITENTAN
     Dosage: UNK
     Dates: start: 20240129
  6. VANTIN [Concomitant]
     Active Substance: CEFPODOXIME PROXETIL
     Dosage: UNK
     Dates: start: 20241207
  7. DEMADEX [Concomitant]
     Active Substance: TORSEMIDE
     Dosage: UNK
     Dates: start: 20241204
  8. PLAVIX [Concomitant]
     Active Substance: CLOPIDOGREL BISULFATE
     Dosage: UNK
     Dates: start: 20241204
  9. NORVASC [Concomitant]
     Active Substance: AMLODIPINE BESYLATE
     Dosage: UNK
     Dates: start: 20241204
  10. LORATADINE [Concomitant]
     Active Substance: LORATADINE
     Dosage: UNK
  11. LUBRIFRESH P.M. [Concomitant]
     Active Substance: MINERAL OIL\PETROLATUM
     Dosage: UNK
  12. BACTROBAN [Concomitant]
     Active Substance: MUPIROCIN CALCIUM
     Dosage: UNK
     Dates: start: 20241115
  13. COLACE [Concomitant]
     Active Substance: DOCUSATE SODIUM
     Dosage: UNK
  14. CROMOLYN SODIUM [Concomitant]
     Active Substance: CROMOLYN SODIUM
     Dosage: UNK
  15. MICARDIS [Concomitant]
     Active Substance: TELMISARTAN
     Dosage: UNK
  16. PREDNISOLONE [Concomitant]
     Active Substance: PREDNISOLONE
     Dosage: UNK
     Dates: start: 20230823
  17. PROVENTIL [Concomitant]
     Active Substance: ALBUTEROL
     Dosage: UNK
     Dates: start: 20240912
  18. ALBUTEROL SULFATE [Concomitant]
     Active Substance: ALBUTEROL SULFATE
     Dosage: UNK
     Route: 055
     Dates: start: 20230912
  19. PROAIR HFA [Concomitant]
     Active Substance: ALBUTEROL SULFATE
     Dosage: UNK
     Route: 055
  20. ASPIRIN [Concomitant]
     Active Substance: ASPIRIN
     Dosage: UNK
  21. PREVACID [Concomitant]
     Active Substance: LANSOPRAZOLE
     Dosage: UNK
  22. IMURAN [Concomitant]
     Active Substance: AZATHIOPRINE
     Dosage: UNK
  23. KEFLEX [Concomitant]
     Active Substance: CEPHALEXIN
     Dosage: UNK

REACTIONS (4)
  - Urinary tract infection [Not Recovered/Not Resolved]
  - Peripheral swelling [Recovered/Resolved]
  - Blood pressure decreased [Unknown]
  - Fluid retention [Unknown]

NARRATIVE: CASE EVENT DATE: 20240101
